FAERS Safety Report 13593515 (Version 1)
Quarter: 2017Q2

REPORT INFORMATION
  Report Type: Spontaneous
  Country: US (occurrence: US)
  Receive Date: 20170530
  Receipt Date: 20170530
  Transmission Date: 20170830
  Serious: No
  Sender: FDA-Public Use
  Company Number: US-TEVA-664295USA

PATIENT
  Sex: Male
  Weight: 72.64 kg

DRUGS (2)
  1. CLOPIDOGREL [Suspect]
     Active Substance: CLOPIDOGREL BISULFATE
     Indication: ARTERIAL OCCLUSIVE DISEASE
     Dosage: 75 MILLIGRAM DAILY;
     Dates: start: 2008
  2. DULOXETINE. [Suspect]
     Active Substance: DULOXETINE
     Route: 065

REACTIONS (4)
  - Confusional state [Unknown]
  - Feeling abnormal [Unknown]
  - Abnormal dreams [Unknown]
  - Speech disorder [Unknown]
